FAERS Safety Report 24767629 (Version 1)
Quarter: 2024Q4

REPORT INFORMATION
  Report Type: Spontaneous
  Country: DE (occurrence: None)
  Receive Date: 20241221
  Receipt Date: 20241221
  Transmission Date: 20250115
  Serious: Yes (Other)
  Sender: Public
  Company Number: None

PATIENT
  Age: 28 Year
  Sex: Female
  Weight: 52 kg

DRUGS (3)
  1. ZOLOFT [Suspect]
     Active Substance: SERTRALINE HYDROCHLORIDE
     Indication: Premenstrual syndrome
  2. HYPERICUM PERFORATUM WHOLE [Concomitant]
     Active Substance: HYPERICUM PERFORATUM WHOLE
  3. BUPROPION [Concomitant]
     Active Substance: BUPROPION

REACTIONS (12)
  - Loss of libido [None]
  - Genital hypoaesthesia [None]
  - Emotional disorder [None]
  - Apathy [None]
  - Dry eye [None]
  - Dry skin [None]
  - Hypoaesthesia [None]
  - Inadequate lubrication [None]
  - Memory impairment [None]
  - Cognitive disorder [None]
  - Sexual dysfunction [None]
  - Small fibre neuropathy [None]

NARRATIVE: CASE EVENT DATE: 20210507
